FAERS Safety Report 6928141-5 (Version None)
Quarter: 2010Q3

REPORT INFORMATION
  Report Type: 
  Country: None (occurrence: None)
  Receive Date: 20100817
  Receipt Date: 20100803
  Transmission Date: 20110219
  Serious: Yes (Other)
  Sender: FDA-Public Use
  Company Number: IT-JNJFOC-20100801959

PATIENT
  Age: 17 Year
  Sex: Male

DRUGS (4)
  1. INFLIXIMAB, RECOMBINANT [Suspect]
     Indication: COLITIS ULCERATIVE
     Dosage: TOTAL OF 7 INFUSIONS
     Route: 042
  2. INFLIXIMAB, RECOMBINANT [Suspect]
     Dosage: WEEK 0,2, AND 6
     Route: 042
  3. METHYLPREDNISOLONE [Concomitant]
     Indication: PREMEDICATION
     Route: 042
  4. CHLORPHENAMINE [Concomitant]
     Indication: PREMEDICATION
     Route: 042

REACTIONS (1)
  - LEUKOCYTOCLASTIC VASCULITIS [None]
